FAERS Safety Report 4289982-9 (Version None)
Quarter: 2004Q1

REPORT INFORMATION
  Report Type: 
  Country: None (occurrence: None)
  Receive Date: 20040206
  Receipt Date: 20040129
  Transmission Date: 20041129
  Serious: Yes (Hospitalization)
  Sender: FDA-Public Use
  Company Number: 200306682

PATIENT
  Age: 22 Year
  Sex: Female
  Weight: 60 kg

DRUGS (2)
  1. ACETAMINOPHEN PRODUCT (ACETAMINOPHEN) [Suspect]
     Indication: PRURITUS
     Dosage: PO
     Route: 048
     Dates: start: 20010627, end: 20010627
  2. COLDEX(ACETAMINOPHEN/CAFFEINE/PHENYLEPHRINE/CHLORPHENIRAMINE) [Suspect]
     Indication: RHINORRHOEA
     Dosage: PO
     Route: 048
     Dates: start: 20010627, end: 20010627

REACTIONS (2)
  - RASH PRURITIC [None]
  - RASH VESICULAR [None]
